FAERS Safety Report 14816799 (Version 2)
Quarter: 2018Q2

REPORT INFORMATION
  Report Type: Spontaneous
  Country: US (occurrence: US)
  Receive Date: 20180426
  Receipt Date: 20180518
  Transmission Date: 20180711
  Serious: No
  Sender: FDA-Public Use
  Company Number: US-ELI_LILLY_AND_COMPANY-US201804011617

PATIENT
  Age: 61 Year
  Sex: Female

DRUGS (2)
  1. ADCIRCA [Suspect]
     Active Substance: TADALAFIL
     Indication: PRODUCT USED FOR UNKNOWN INDICATION
     Dosage: 20 MG, BID
     Route: 048
  2. AMBRISENTAN [Suspect]
     Active Substance: AMBRISENTAN
     Indication: PRODUCT USED FOR UNKNOWN INDICATION
     Dosage: 5 MG, DAILY
     Route: 065
     Dates: start: 20180315

REACTIONS (10)
  - Flushing [Unknown]
  - Dizziness [Unknown]
  - Ear infection [Unknown]
  - Epistaxis [Unknown]
  - Nasal congestion [Unknown]
  - Diplopia [Unknown]
  - Joint swelling [Not Recovered/Not Resolved]
  - Vertigo [Unknown]
  - Headache [Unknown]
  - Ocular hyperaemia [Unknown]
